FAERS Safety Report 4635542-7 (Version None)
Quarter: 2005Q2

REPORT INFORMATION
  Report Type: 
  Country: None (occurrence: None)
  Receive Date: 20050413
  Receipt Date: 20050331
  Transmission Date: 20051028
  Serious: Yes (Death, Other)
  Sender: FDA-Public Use
  Company Number: 2004102186

PATIENT
  Age: 83 Year
  Sex: Male
  Weight: 92.9874 kg

DRUGS (11)
  1. GEODON [Suspect]
     Indication: ABNORMAL BEHAVIOUR
     Dosage: 80 MG (20 MG, 4 IN 1 D), ORAL
     Route: 048
     Dates: start: 20040930, end: 20041201
  2. CYANOCOBALAMIN [Concomitant]
  3. RANITIDINE HYDROCHLORIDE (RANTIDINE HYDROCHLORIDE) [Concomitant]
  4. SENNA FRUIT (SENNA FRUIT) [Concomitant]
  5. HYDROCHLOROTHIAZIDE [Concomitant]
  6. MAGENSIUM HYDROXIDE (MAGNESIUM HYDROXIDE) [Concomitant]
  7. TOCOPHEROL (TOCOPHEROL) [Concomitant]
  8. POTASSIUM CHLORIDE [Concomitant]
  9. ALL OTHER THERAPETUTIC PRODUCTS (ALL OTHER THERAPEUTIC PRODUCTS) [Concomitant]
  10. MIRTAZAPINE [Concomitant]
  11. QUETIAPINE FUMARATE [Concomitant]

REACTIONS (8)
  - AGGRESSION [None]
  - ATRIOVENTRICULAR BLOCK FIRST DEGREE [None]
  - BLOOD CHLORIDE DECREASED [None]
  - BLOOD MAGNESIUM INCREASED [None]
  - BLOOD SODIUM INCREASED [None]
  - GENERAL PHYSICAL HEALTH DETERIORATION [None]
  - RENAL FAILURE [None]
  - VENTRICULAR EXTRASYSTOLES [None]
